FAERS Safety Report 9375253 (Version 1)
Quarter: 2013Q2

REPORT INFORMATION
  Report Type: Report from Study
  Country: FR (occurrence: FR)
  Receive Date: 20130628
  Receipt Date: 20130628
  Transmission Date: 20140414
  Serious: Yes (Death, Other)
  Sender: FDA-Public Use
  Company Number: FR-PFIZER INC-2013190077

PATIENT
  Age: 65 Year
  Sex: 0

DRUGS (3)
  1. FLUOROURACIL [Suspect]
     Indication: COLORECTAL CANCER
     Dosage: UNK
  2. OXALIPLATIN [Concomitant]
     Indication: COLORECTAL CANCER
     Dosage: UNK
  3. FOLINIC ACID [Concomitant]
     Indication: COLORECTAL CANCER
     Dosage: UNK

REACTIONS (7)
  - Death [Fatal]
  - Renal failure [Unknown]
  - Febrile neutropenia [Unknown]
  - Sepsis [Unknown]
  - Diarrhoea [Unknown]
  - Mucosal inflammation [Unknown]
  - Dehydration [Unknown]
